FAERS Safety Report 8798830 (Version 1)
Quarter: 2012Q4

REPORT INFORMATION
  Report Type: Spontaneous
  Country: US (occurrence: None)
  Receive Date: 20120918
  Receipt Date: 20120918
  Transmission Date: 20130627
  Serious: No
  Sender: FDA-Public Use
  Company Number: None

PATIENT
  Age: 9 Year
  Sex: Female

DRUGS (2)
  1. MONTELUKAST [Suspect]
     Indication: ASTHMA
     Route: 048
  2. MONTELUKAST [Suspect]
     Indication: ALLERGIC RHINITIS
     Route: 048

REACTIONS (3)
  - Malaise [None]
  - Diarrhoea [None]
  - Flatulence [None]
